FAERS Safety Report 8434659-9 (Version None)
Quarter: 2012Q2

REPORT INFORMATION
  Report Type: 
  Country: None (occurrence: None)
  Receive Date: 20120323
  Receipt Date: 20110909
  Transmission Date: 20120825
  Serious: Yes (Disabling)
  Sender: FDA-Public Use
  Company Number: 163-21880-11061202

PATIENT
  Age: 82 Year
  Sex: Male

DRUGS (2)
  1. DECADRON [Concomitant]
  2. REVLIMID [Suspect]
     Indication: MYELODYSPLASTIC SYNDROME
     Dosage: 10 MG, DAILY 3/4 WEEKS, PO
     Route: 048
     Dates: start: 20110413, end: 20110524

REACTIONS (2)
  - FATIGUE [None]
  - ABDOMINAL PAIN UPPER [None]
